FAERS Safety Report 7281673-5 (Version None)
Quarter: 2011Q1

REPORT INFORMATION
  Report Type: 
  Country: None (occurrence: None)
  Receive Date: 20110127
  Receipt Date: 20110112
  Transmission Date: 20110831
  Serious: Yes (Disabling, Other)
  Sender: FDA-Public Use
  Company Number: ACO_21466_2011

PATIENT
  Age: 62 Year
  Sex: Male

DRUGS (9)
  1. AVONEX [Concomitant]
  2. AMPYRA [Suspect]
     Indication: PRODUCT USED FOR UNKNOWN INDICATION
     Dosage: 10 MG, BID, ORAL
     Route: 048
     Dates: start: 20100101, end: 20101201
  3. LOVAZA [Concomitant]
  4. TAMSULOSIN HCL [Concomitant]
  5. INDAPAMIDE [Concomitant]
  6. ROPINIROLE HYDROCHLORIDE [Concomitant]
  7. ATACAND A (CANDESARTAN CILEXETIL) [Concomitant]
  8. RAPAFLO (SILODOSIN) [Concomitant]
  9. LESCOL [Concomitant]

REACTIONS (1)
  - ABASIA [None]
